FAERS Safety Report 8066353-0 (Version None)
Quarter: 2012Q1

REPORT INFORMATION
  Report Type: 
  Country: None (occurrence: None)
  Receive Date: 20120124
  Receipt Date: 20120116
  Transmission Date: 20120608
  Serious: Yes (Hospitalization)
  Sender: FDA-Public Use
  Company Number: US-BAYER-2011-034373

PATIENT
  Age: 20 Year
  Sex: Female
  Weight: 54.422 kg

DRUGS (5)
  1. ALBUTEROL [Concomitant]
     Dosage: UNK
     Dates: start: 19980101
  2. AZITHROMYCIN [Concomitant]
     Dosage: 250 MG, UNK
     Route: 048
     Dates: start: 20060423
  3. PERCOCET [Concomitant]
  4. EFFEXOR [Concomitant]
  5. YASMIN [Suspect]
     Indication: CONTRACEPTION
     Dosage: UNK
     Route: 048
     Dates: start: 20020801, end: 20061101

REACTIONS (8)
  - EMOTIONAL DISTRESS [None]
  - CHEST PAIN [None]
  - DYSPNOEA [None]
  - PAIN [None]
  - GENERAL PHYSICAL HEALTH DETERIORATION [None]
  - INJURY [None]
  - PULMONARY EMBOLISM [None]
  - ANXIETY [None]
